FAERS Safety Report 9696779 (Version 2)
Quarter: 2013Q4

REPORT INFORMATION
  Report Type: Spontaneous
  Country: US (occurrence: US)
  Receive Date: 20131119
  Receipt Date: 20131119
  Transmission Date: 20140711
  Serious: No
  Sender: FDA-Public Use
  Company Number: US-GILEAD-2007-0014380

PATIENT
  Sex: Female
  Weight: 77.11 kg

DRUGS (6)
  1. LETAIRIS [Suspect]
     Indication: PULMONARY HYPERTENSION
     Route: 048
  2. EFFEXOR [Concomitant]
     Dosage: PRN
     Route: 048
  3. COUMADIN [Concomitant]
     Route: 048
  4. DIOVAN [Concomitant]
     Dosage: UD
     Route: 048
  5. ALLEGRA-D 12 HOUR [Concomitant]
     Dosage: UD
     Route: 048
  6. CALCIUM [Concomitant]
     Route: 048

REACTIONS (2)
  - Muscular weakness [Unknown]
  - Dyspnoea [Unknown]
